FAERS Safety Report 5754549-X (Version None)
Quarter: 2008Q2

REPORT INFORMATION
  Report Type: 
  Country: None (occurrence: None)
  Receive Date: 20080530
  Receipt Date: 20080519
  Transmission Date: 20081010
  Serious: Yes (Hospitalization)
  Sender: FDA-Public Use
  Company Number: US-PFIZER INC-2008042617

PATIENT
  Sex: Female
  Weight: 72.727 kg

DRUGS (3)
  1. DILANTIN [Suspect]
     Indication: CONVULSION
  2. TOPAMAX [Concomitant]
  3. METFORMIN HCL [Concomitant]

REACTIONS (3)
  - DRUG INEFFECTIVE [None]
  - FALL [None]
  - STERNAL FRACTURE [None]
